FAERS Safety Report 9980884 (Version 7)
Quarter: 2015Q1

REPORT INFORMATION
  Report Type: Spontaneous
  Country: US (occurrence: US)
  Receive Date: 20140307
  Receipt Date: 20150330
  Transmission Date: 20150721
  Serious: No
  Sender: FDA-Public Use
  Company Number: US-PFIZER INC-2014064535

PATIENT
  Age: 54 Year
  Sex: Female
  Weight: 78 kg

DRUGS (11)
  1. SUTENT [Suspect]
     Active Substance: SUNITINIB MALATE
     Dosage: 25 MG, DAILY (M-F)
     Route: 048
     Dates: start: 20130822
  2. ENOXAPARIN [Concomitant]
     Active Substance: ENOXAPARIN
     Dosage: UNK
  3. WARFARIN [Concomitant]
     Active Substance: WARFARIN
     Dosage: UNK
  4. TOPIRAMATE. [Concomitant]
     Active Substance: TOPIRAMATE
     Dosage: UNK
  5. FISH OIL [Concomitant]
     Active Substance: FISH OIL
     Dosage: UNK
  6. SUTENT [Suspect]
     Active Substance: SUNITINIB MALATE
     Indication: CONNECTIVE TISSUE NEOPLASM
     Dosage: 25 MG, 1X/DAY
     Route: 048
     Dates: start: 20130816
  7. TRIAMCINOLONE ACETONIDE. [Concomitant]
     Active Substance: TRIAMCINOLONE ACETONIDE
     Dosage: UNK
  8. SUTENT [Suspect]
     Active Substance: SUNITINIB MALATE
     Dosage: 25 MG, DAILY
     Route: 048
     Dates: start: 20131204
  9. VENLAFAXINE [Concomitant]
     Active Substance: VENLAFAXINE HYDROCHLORIDE
     Dosage: UNK
  10. SUTENT [Suspect]
     Active Substance: SUNITINIB MALATE
     Dosage: 25 MG, 1X/DAY  (M-F)
     Route: 048
     Dates: start: 201502
  11. SIMVASTATIN. [Concomitant]
     Active Substance: SIMVASTATIN
     Dosage: UNK

REACTIONS (3)
  - Diarrhoea [Not Recovered/Not Resolved]
  - Dyspepsia [Unknown]
  - Fatigue [Unknown]

NARRATIVE: CASE EVENT DATE: 20150218
